FAERS Safety Report 11736135 (Version 1)
Quarter: 2015Q4

REPORT INFORMATION
  Report Type: Spontaneous
  Country: US (occurrence: US)
  Receive Date: 20151113
  Receipt Date: 20151113
  Transmission Date: 20160304
  Serious: Yes (Other)
  Sender: FDA-Public Use
  Company Number: US-JNJFOC-20151006187

PATIENT

DRUGS (3)
  1. DOXORUBICIN HYDROCHLORIDE. [Suspect]
     Active Substance: DOXORUBICIN HYDROCHLORIDE
     Indication: SARCOMA METASTATIC
     Dosage: DAYS 1 AND 8 OF A 21 DAY CYCLE
     Route: 065
  2. DOCETAXEL. [Suspect]
     Active Substance: DOCETAXEL
     Indication: SARCOMA METASTATIC
     Dosage: DAYS 1 AND 8 OF A 21 DAY CYCLE
     Route: 065
  3. GEMCITABINE [Suspect]
     Active Substance: GEMCITABINE\GEMCITABINE HYDROCHLORIDE
     Indication: SARCOMA METASTATIC
     Route: 065

REACTIONS (4)
  - Neutropenia [Unknown]
  - Thrombocytopenia [Unknown]
  - Off label use [Unknown]
  - Product use issue [Unknown]
